FAERS Safety Report 5414542-3 (Version None)
Quarter: 2007Q3

REPORT INFORMATION
  Report Type: 
  Country: None (occurrence: None)
  Receive Date: 20070713
  Receipt Date: 20070509
  Transmission Date: 20080115
  Serious: Yes (Hospitalization)
  Sender: FDA-Public Use
  Company Number: US-JNJFOC-20070106679

PATIENT
  Age: 38 Year
  Sex: Female
  Weight: 77.1115 kg

DRUGS (8)
  1. ORTHO EVRA [Suspect]
     Indication: CONTRACEPTION
     Dosage: TRANSDERMAL
     Route: 062
     Dates: start: 20040303, end: 20050401
  2. PERCOSE (ACARBOSE) [Concomitant]
  3. FLEXERIL [Concomitant]
  4. PHENERGEN (PROMETHAZINE HYDROCHLORIDE) [Concomitant]
  5. PERCOCET [Concomitant]
  6. DEMEROL [Concomitant]
  7. XANAX [Concomitant]
  8. DEMEROL [Concomitant]

REACTIONS (1)
  - DEEP VEIN THROMBOSIS [None]
